FAERS Safety Report 8270840-X (Version None)
Quarter: 2012Q2

REPORT INFORMATION
  Report Type: 
  Country: None (occurrence: None)
  Receive Date: 20120410
  Receipt Date: 20120410
  Transmission Date: 20120825
  Serious: Yes (Hospitalization)
  Sender: FDA-Public Use
  Company Number: None

PATIENT
  Age: 74 Year
  Sex: Female
  Weight: 68 kg

DRUGS (2)
  1. ENOXAPARIN [Suspect]
     Indication: THROMBOSIS PROPHYLAXIS
     Dosage: 30MG
     Route: 058
     Dates: start: 20120320, end: 20120324
  2. RIVAROXABAN [Concomitant]
     Indication: THROMBOSIS PROPHYLAXIS
     Dosage: 10MG
     Route: 048
     Dates: start: 20120324, end: 20120329

REACTIONS (1)
  - ANAEMIA [None]
